FAERS Safety Report 8266175 (Version 2)
Quarter: 2013Q4

REPORT INFORMATION
  Report Type: Spontaneous
  Country: US (occurrence: US)
  Receive Date: 20111129
  Receipt Date: 20131122
  Transmission Date: 20140711
  Serious: No
  Sender: FDA-Public Use
  Company Number: US-MYLANLABS-2011S1019067

PATIENT
  Age: 69 Year
  Sex: Female
  Weight: 61.24 kg

DRUGS (7)
  1. AMLODIPINE BESYLATE TABLETS [Suspect]
     Indication: BLOOD PRESSURE INCREASED
     Route: 048
     Dates: start: 201107, end: 201108
  2. AMLODIPINE BESYLATE TABLETS [Suspect]
     Indication: BLOOD PRESSURE INCREASED
     Route: 048
     Dates: start: 201208, end: 201209
  3. CRESTOR [Concomitant]
     Indication: BLOOD CHOLESTEROL
     Route: 048
  4. ZETIA [Concomitant]
     Route: 048
  5. VITAMINS [Concomitant]
     Route: 048
  6. VERAPAMIL [Concomitant]
  7. ALIGN [Concomitant]

REACTIONS (7)
  - Dizziness [Recovering/Resolving]
  - Headache [Recovered/Resolved]
  - Flushing [Recovered/Resolved]
  - Feeling abnormal [Recovered/Resolved]
  - Joint swelling [Recovered/Resolved]
  - Muscle spasms [Recovered/Resolved]
  - Musculoskeletal discomfort [Recovered/Resolved]
